FAERS Safety Report 8159478 (Version 3)
Quarter: 2016Q2

REPORT INFORMATION
  Report Type: Report from Study
  Country: LB (occurrence: LB)
  Receive Date: 20110928
  Receipt Date: 20160513
  Transmission Date: 20160815
  Serious: Yes (Death, Hospitalization, Other)
  Sender: FDA-Public Use
  Company Number: LB-SANOFI-AVENTIS-2010SA040648

PATIENT
  Sex: Male
  Weight: 74.5 kg

DRUGS (24)
  1. PRIMPERAN [Concomitant]
     Active Substance: METOCLOPRAMIDE HYDROCHLORIDE
  2. 5-FU [Suspect]
     Active Substance: FLUOROURACIL
     Indication: COLORECTAL CANCER
     Route: 042
  3. SOLU-MEDROL [Concomitant]
     Active Substance: METHYLPREDNISOLONE SODIUM SUCCINATE
  4. ELOXATIN [Suspect]
     Active Substance: OXALIPLATIN
     Indication: COLORECTAL CANCER
     Route: 042
     Dates: start: 20100618, end: 20100618
  5. 5-FU [Suspect]
     Active Substance: FLUOROURACIL
     Indication: COLORECTAL CANCER
     Route: 042
     Dates: start: 20100604, end: 20100604
  6. DIFLUCAN [Concomitant]
     Active Substance: FLUCONAZOLE
  7. MAGNESIUM SULFATE. [Concomitant]
     Active Substance: MAGNESIUM SULFATE
  8. MOTILIUM [Concomitant]
     Active Substance: DOMPERIDONE
  9. MAGNE-B6 [Concomitant]
     Active Substance: MAGNESIUM LACTATE\PYRIDOXINE HYDROCHLORIDE
  10. 5-FU [Suspect]
     Active Substance: FLUOROURACIL
     Indication: COLORECTAL CANCER
     Route: 042
     Dates: start: 20100618, end: 20100618
  11. ZANTAC [Concomitant]
     Active Substance: RANITIDINE HYDROCHLORIDE
  12. LEUCOVORIN. [Suspect]
     Active Substance: LEUCOVORIN
     Indication: COLORECTAL CANCER
     Route: 042
     Dates: start: 20100618, end: 20100618
  13. PARIET [Concomitant]
     Active Substance: RABEPRAZOLE SODIUM
  14. ZOLOFT [Concomitant]
     Active Substance: SERTRALINE HYDROCHLORIDE
  15. XANAX [Concomitant]
     Active Substance: ALPRAZOLAM
  16. ZOFRAN [Concomitant]
     Active Substance: ONDANSETRON HYDROCHLORIDE
  17. ELOXATIN [Suspect]
     Active Substance: OXALIPLATIN
     Indication: COLORECTAL CANCER
     Route: 042
     Dates: start: 20100604, end: 20100604
  18. CALCIUM GLUCONATE. [Concomitant]
     Active Substance: CALCIUM GLUCONATE
  19. ELOXATIN [Suspect]
     Active Substance: OXALIPLATIN
     Indication: COLORECTAL CANCER
     Route: 042
  20. LEUCOVORIN. [Suspect]
     Active Substance: LEUCOVORIN
     Indication: COLORECTAL CANCER
     Route: 042
     Dates: start: 20100604, end: 20100604
  21. LEUCOVORIN. [Suspect]
     Active Substance: LEUCOVORIN
     Indication: COLORECTAL CANCER
     Route: 042
  22. FLAGYL [Concomitant]
     Active Substance: METRONIDAZOLE\METRONIDAZOLE HYDROCHLORIDE
  23. INNOHEP [Concomitant]
     Active Substance: TINZAPARIN SODIUM
  24. VITAMIN B6 [Concomitant]
     Active Substance: PYRIDOXINE HYDROCHLORIDE

REACTIONS (4)
  - Fatigue [Fatal]
  - Renal failure [Recovered/Resolved]
  - Diarrhoea [Recovering/Resolving]
  - Asthenia [Fatal]

NARRATIVE: CASE EVENT DATE: 20100704
